FAERS Safety Report 14827249 (Version 1)
Quarter: 2018Q2

REPORT INFORMATION
  Report Type: Spontaneous
  Country: US (occurrence: US)
  Receive Date: 20180430
  Receipt Date: 20180430
  Transmission Date: 20180711
  Serious: No
  Sender: FDA-Public Use
  Company Number: US-ABBVIE-17P-163-2055009-00

PATIENT
  Age: 60 Year
  Sex: Male
  Weight: 51.3 kg

DRUGS (5)
  1. LOSARTAN (NON-ABBVIE) [Concomitant]
     Indication: HYPERTENSION
  2. OCTREOTIDE (NON-ABBVIE) [Concomitant]
     Indication: PANCREATIC MASS
  3. CREON [Suspect]
     Active Substance: PANCRELIPASE AMYLASE\PANCRELIPASE LIPASE\PANCRELIPASE PROTEASE
     Indication: PANCREATECTOMY
     Dosage: 3 CAPSULES WITH EACH MEAL AND 1 CAPSULE WITH SNACK
     Route: 048
     Dates: start: 201602
  4. LANREOTIDE  (NON-ABBVIE) [Concomitant]
     Indication: PANCREATIC MASS
  5. OXYCODONE  (NON-ABBVIE) [Concomitant]
     Indication: PAIN

REACTIONS (3)
  - Weight decreased [Not Recovered/Not Resolved]
  - Drug ineffective [Not Recovered/Not Resolved]
  - Incorrect dose administered [Not Recovered/Not Resolved]

NARRATIVE: CASE EVENT DATE: 201602
